FAERS Safety Report 5941005-9 (Version None)
Quarter: 2008Q4

REPORT INFORMATION
  Report Type: 
  Country: None (occurrence: None)
  Receive Date: 20081031
  Receipt Date: 20081016
  Transmission Date: 20090506
  Serious: Yes (Hospitalization, Other)
  Sender: FDA-Public Use
  Company Number: 2008S1019233

PATIENT
  Sex: Female

DRUGS (2)
  1. MERCAPTAMINE BITARTRATE (MERCAPTAMINE BITARTRATE) (150 MG) [Suspect]
     Indication: CYSTINOSIS
     Dosage: ; DAILY;, 72 MG/KG; DAILY;, 60 MG/KG; DAILY;, 61.2 MG/KG; DAILY;, 63 MG/KG; DAILY;, 65 MG/KG; DAILY;
     Dates: start: 20001228
  2. OMEPRAZOLE [Concomitant]

REACTIONS (10)
  - ANOREXIA [None]
  - ASTHENIA [None]
  - CONJUNCTIVITIS [None]
  - DIARRHOEA [None]
  - HYPERSOMNIA [None]
  - NAUSEA [None]
  - PETECHIAE [None]
  - PHARYNGITIS [None]
  - VIRAL INFECTION [None]
  - VOMITING [None]
